FAERS Safety Report 5496158-6 (Version None)
Quarter: 2007Q4

REPORT INFORMATION
  Report Type: 
  Country: None (occurrence: None)
  Receive Date: 20071023
  Receipt Date: 20071023
  Transmission Date: 20080405
  Serious: Yes (Hospitalization)
  Sender: FDA-Public Use
  Company Number: None

PATIENT
  Age: 82 Year
  Sex: Female
  Weight: 77.5651 kg

DRUGS (2)
  1. PEMETREXED [Suspect]
     Indication: INVESTIGATION
     Dosage: ALREADY PROVIDED
  2. GEMCITABINE [Suspect]
     Indication: NEOPLASM MALIGNANT

REACTIONS (4)
  - CELLULITIS [None]
  - NEUTROPENIA [None]
  - OEDEMA PERIPHERAL [None]
  - VENOUS STASIS [None]
